FAERS Safety Report 6300724-5 (Version None)
Quarter: 2009Q3

REPORT INFORMATION
  Report Type: 
  Country: None (occurrence: None)
  Receive Date: 20090807
  Receipt Date: 20070822
  Transmission Date: 20100115
  Serious: Yes (Other)
  Sender: FDA-Public Use
  Company Number: US-ASTRAZENECA-2006UW26483

PATIENT
  Age: 11528 Day
  Sex: Male
  Weight: 84.8 kg

DRUGS (21)
  1. SEROQUEL [Suspect]
     Indication: DEPRESSION
     Dosage: DOSE: 100 MG
     Route: 048
     Dates: start: 20020101, end: 20060101
  2. SEROQUEL [Suspect]
     Indication: AFFECTIVE DISORDER
     Dosage: DOSE: 100 MG
     Route: 048
     Dates: start: 20020101, end: 20060101
  3. SEROQUEL [Suspect]
     Dosage: 100 MG - 500 MG
     Route: 048
     Dates: start: 20030602, end: 20061214
  4. SEROQUEL [Suspect]
     Dosage: 100 MG - 500 MG
     Route: 048
     Dates: start: 20030602, end: 20061214
  5. METHADONE HCL [Concomitant]
     Dates: start: 20030101, end: 20060101
  6. ZOLOFT [Concomitant]
     Indication: DEPRESSION
     Dosage: 25 MG - 100 MG
     Dates: start: 20041029
  7. NEURONTIN [Concomitant]
     Indication: NEURALGIA
     Dosage: 300 MG - 800 MG
     Dates: start: 20031009
  8. DEPAKOTE [Concomitant]
     Indication: AFFECTIVE DISORDER
     Dosage: 5 MG - 1500 MG
     Dates: start: 20040824
  9. DEPAKOTE [Concomitant]
     Indication: CONVULSION
     Dosage: 5 MG - 1500 MG
     Dates: start: 20040824
  10. REMERON [Concomitant]
     Indication: DEPRESSIVE SYMPTOM
     Dosage: 15 MG - 45 MG
     Dates: start: 20041029
  11. REMERON [Concomitant]
     Indication: SLEEP DISORDER
     Dosage: 15 MG - 45 MG
     Dates: start: 20041029
  12. XANAX [Concomitant]
     Indication: DEPRESSION
     Dosage: 0.5 MG - 10 MG
     Dates: start: 20011029
  13. XANAX [Concomitant]
     Indication: MENTAL DISORDER
     Dosage: 0.5 MG - 10 MG
     Dates: start: 20011029
  14. RISPERDAL [Concomitant]
     Indication: AGITATION
     Dosage: 0.5 MG - 25 MG
     Dates: start: 20011029
  15. RISPERDAL [Concomitant]
     Indication: RESTLESSNESS
     Dosage: 0.5 MG - 25 MG
     Dates: start: 20011029
  16. ATIVAN [Concomitant]
     Indication: ANXIETY
     Dosage: 1 MG - 2 MG
     Dates: start: 20011029
  17. ATIVAN [Concomitant]
     Indication: AGITATION
     Dosage: 1 MG - 2 MG
     Dates: start: 20011029
  18. ATIVAN [Concomitant]
     Indication: RESTLESSNESS
     Dosage: 1 MG - 2 MG
     Dates: start: 20011029
  19. ZOCOR [Concomitant]
     Dosage: 20 MG - 40 MG
     Dates: start: 20050223
  20. VISTARIL [Concomitant]
     Indication: AGITATION
     Dosage: 10 MG - 50 MG
     Dates: start: 20040127
  21. CLONAZEPAM [Concomitant]
     Dosage: 0.5 MG - 2 MG
     Dates: start: 20020107

REACTIONS (5)
  - DIABETES MELLITUS INADEQUATE CONTROL [None]
  - INSULIN-REQUIRING TYPE 2 DIABETES MELLITUS [None]
  - KETOACIDOSIS [None]
  - NEUROPATHY PERIPHERAL [None]
  - TYPE 1 DIABETES MELLITUS [None]
